FAERS Safety Report 11462566 (Version 1)
Quarter: 2015Q3

REPORT INFORMATION
  Report Type: Spontaneous
  Country: US (occurrence: US)
  Receive Date: 20150831
  Receipt Date: 20150831
  Transmission Date: 20151125
  Serious: No
  Sender: FDA-Public Use
  Company Number: US-ELI_LILLY_AND_COMPANY-US201012002738

PATIENT
  Age: 61 Year
  Sex: Female

DRUGS (4)
  1. AMBIEN [Concomitant]
     Active Substance: ZOLPIDEM TARTRATE
  2. CYMBALTA [Suspect]
     Active Substance: DULOXETINE HYDROCHLORIDE
     Indication: DEPRESSION
     Dosage: 30 MG, DAILY (1/D)
  3. CYMBALTA [Suspect]
     Active Substance: DULOXETINE HYDROCHLORIDE
     Dosage: 30 MG, OTHER
     Dates: end: 20101126
  4. XANAX [Concomitant]
     Active Substance: ALPRAZOLAM

REACTIONS (10)
  - Confusional state [Recovering/Resolving]
  - Irritability [Recovering/Resolving]
  - Drug withdrawal syndrome [Recovering/Resolving]
  - Cold sweat [Recovering/Resolving]
  - Dizziness [Recovering/Resolving]
  - Nausea [Recovering/Resolving]
  - Anxiety [Recovering/Resolving]
  - Feeling abnormal [Recovering/Resolving]
  - Headache [Recovering/Resolving]
  - Fatigue [Recovering/Resolving]
